FAERS Safety Report 4668068-5 (Version None)
Quarter: 2005Q2

REPORT INFORMATION
  Report Type: 
  Country: None (occurrence: None)
  Receive Date: 20050520
  Receipt Date: 20050119
  Transmission Date: 20051028
  Serious: Yes (Hospitalization, Other)
  Sender: FDA-Public Use
  Company Number: US-MERCK-0501USA03239

PATIENT
  Age: 75 Year
  Sex: Female
  Weight: 73 kg

DRUGS (6)
  1. VIOXX [Suspect]
     Indication: SCIATICA
     Route: 048
     Dates: start: 20020101, end: 20030101
  2. [THERAPY UNSPECIFIED] [Concomitant]
     Indication: BLOOD PRESSURE
     Route: 065
  3. ECOTRIN [Concomitant]
     Route: 048
  4. ACCUPRIL [Concomitant]
     Route: 065
  5. HYZAAR [Concomitant]
     Route: 065
  6. ADVIL [Concomitant]
     Route: 065

REACTIONS (8)
  - ARTHROPATHY [None]
  - CEREBRAL ATROPHY [None]
  - CEREBRAL ISCHAEMIA [None]
  - CEREBROVASCULAR ACCIDENT [None]
  - DIPLOPIA [None]
  - EMOTIONAL DISTRESS [None]
  - GASTROOESOPHAGEAL REFLUX DISEASE [None]
  - PROCEDURAL HYPOTENSION [None]
